FAERS Safety Report 8573254-8 (Version None)
Quarter: 2012Q3

REPORT INFORMATION
  Report Type: 
  Country: None (occurrence: None)
  Receive Date: 20120806
  Receipt Date: 20120727
  Transmission Date: 20120928
  Serious: Yes (Hospitalization)
  Sender: FDA-Public Use
  Company Number: JP-VERTEX PHARMACEUTICALS INC.-AE-2012-009037

PATIENT
  Age: 67 Year
  Sex: Male

DRUGS (16)
  1. RIBAVIRIN [Concomitant]
     Route: 048
     Dates: start: 20120510
  2. AMOBAN [Concomitant]
     Route: 048
  3. EPADEL S [Concomitant]
     Route: 048
     Dates: start: 20120411
  4. LOXONIN [Concomitant]
     Route: 048
  5. TELAVIC (TELAPREVIR) [Suspect]
     Route: 048
     Dates: start: 20120510, end: 20120530
  6. LOXONIN [Concomitant]
     Route: 048
  7. MUCOSTA [Concomitant]
     Route: 048
     Dates: start: 20120614, end: 20120703
  8. TELAVIC (TELAPREVIR) [Suspect]
     Route: 048
     Dates: start: 20120531
  9. RIBAVIRIN [Concomitant]
     Route: 048
     Dates: start: 20120502, end: 20120509
  10. TELAVIC (TELAPREVIR) [Suspect]
     Indication: HEPATITIS C
     Route: 048
     Dates: start: 20120411, end: 20120509
  11. DIOVAN [Concomitant]
     Route: 048
  12. RIBAVIRIN [Concomitant]
     Indication: HEPATITIS C
     Route: 048
     Dates: start: 20120411, end: 20120424
  13. NAUZELIN OD [Concomitant]
     Route: 048
     Dates: start: 20120425
  14. NIZATIDINE [Concomitant]
     Route: 048
     Dates: start: 20120426
  15. RIBAVIRIN [Concomitant]
     Route: 048
     Dates: start: 20120425, end: 20120501
  16. PEGINTERFERON ALFA-2B [Concomitant]
     Indication: HEPATITIS C
     Route: 058
     Dates: start: 20120411

REACTIONS (2)
  - SEBORRHOEIC DERMATITIS [None]
  - HAEMORRHOIDS [None]
